FAERS Safety Report 5125276-7 (Version None)
Quarter: 2006Q4

REPORT INFORMATION
  Report Type: 
  Country: None (occurrence: None)
  Receive Date: 20061010
  Receipt Date: 20060922
  Transmission Date: 20070319
  Serious: Yes (Other)
  Sender: FDA-Public Use
  Company Number: 078-20785-06091091

PATIENT
  Age: 45 Year
  Sex: Female

DRUGS (4)
  1. THALIDOMIDE - PHARMION (THALIDOMIDE) (CAPSULES) [Suspect]
     Indication: MULTIPLE MYELOMA
     Dosage: SEE IMAGE, ORAL
     Route: 048
     Dates: start: 20050301
  2. DEXAMETHASONE TAB [Concomitant]
  3. BACTRIM [Concomitant]
  4. LAMIVUDINE [Concomitant]

REACTIONS (5)
  - BLINDNESS TRANSIENT [None]
  - LEUKOENCEPHALOPATHY [None]
  - NEUROPATHY [None]
  - NEUROPATHY PERIPHERAL [None]
  - OPTIC NEURITIS RETROBULBAR [None]
